FAERS Safety Report 9449849 (Version 2)
Quarter: 2013Q3

REPORT INFORMATION
  Report Type: Spontaneous
  Country: ZA (occurrence: ZA)
  Receive Date: 20130809
  Receipt Date: 20130814
  Transmission Date: 20140515
  Serious: Yes (Other)
  Sender: FDA-Public Use
  Company Number: PHHY2013ZA085486

PATIENT
  Age: 67 Year
  Sex: Female

DRUGS (4)
  1. CO-DIOVAN [Suspect]
     Indication: HYPERTENSION
     Dosage: UNK UKN, UNK
  2. CO-DIOVAN [Suspect]
     Dosage: UNK
  3. CO-TAREG [Suspect]
     Indication: HYPERTENSION
     Dosage: UNK UKN, UNK
  4. CARLOC [Concomitant]
     Indication: HYPERTENSION
     Dosage: 25 MG, UNK

REACTIONS (10)
  - Tuberculosis [Unknown]
  - Dark circles under eyes [Unknown]
  - Feeling abnormal [Unknown]
  - Dizziness [Unknown]
  - Malaise [Unknown]
  - Sleep disorder [Unknown]
  - Local swelling [Unknown]
  - Swelling face [Unknown]
  - Eye swelling [Unknown]
  - Blood pressure fluctuation [Unknown]
